FAERS Safety Report 6367245-5 (Version None)
Quarter: 2009Q3

REPORT INFORMATION
  Report Type: 
  Country: None (occurrence: None)
  Receive Date: 20090921
  Receipt Date: 20090911
  Transmission Date: 20100115
  Serious: Yes (Other)
  Sender: FDA-Public Use
  Company Number: US-MERCK-0908USA00687

PATIENT
  Age: 85 Year
  Sex: Female
  Weight: 68 kg

DRUGS (7)
  1. VYTORIN [Suspect]
     Indication: HYPERCHOLESTEROLAEMIA
     Route: 048
  2. NORVASC [Concomitant]
     Indication: HYPERTENSION
     Route: 065
  3. NORVASC [Concomitant]
     Indication: CARDIAC FAILURE CONGESTIVE
     Route: 065
  4. HYDRALAZINE [Concomitant]
     Route: 065
  5. COREG [Concomitant]
     Route: 065
  6. HYDROCHLOROTHIAZIDE [Concomitant]
     Route: 065
  7. ISOSORBIDE [Concomitant]
     Route: 065

REACTIONS (5)
  - BLOOD CREATININE INCREASED [None]
  - BLOOD UREA INCREASED [None]
  - BREAST CANCER RECURRENT [None]
  - LIPIDS INCREASED [None]
  - MUSCULAR WEAKNESS [None]
